FAERS Safety Report 5127495-2 (Version None)
Quarter: 2006Q4

REPORT INFORMATION
  Report Type: 
  Country: None (occurrence: None)
  Receive Date: 20061016
  Receipt Date: 20061003
  Transmission Date: 20070319
  Serious: Yes (Other)
  Sender: FDA-Public Use
  Company Number: PHBS2006BR15382

PATIENT
  Age: 47 Year
  Sex: Female
  Weight: 56 kg

DRUGS (3)
  1. TEGRETOL [Suspect]
     Indication: SWELLING FACE
     Dosage: 400 MG/DAY
     Route: 048
     Dates: start: 20060801
  2. ACTIVELLE [Concomitant]
     Indication: HORMONE REPLACEMENT THERAPY
     Dosage: 0.5 MG/DAY
     Route: 048
     Dates: start: 20060101
  3. OLCADIL [Concomitant]

REACTIONS (10)
  - BLOOD PRESSURE FLUCTUATION [None]
  - CONFUSIONAL STATE [None]
  - DIZZINESS [None]
  - FEAR [None]
  - HEADACHE [None]
  - HEART RATE INCREASED [None]
  - MALAISE [None]
  - MEMORY IMPAIRMENT [None]
  - SENSATION OF HEAVINESS [None]
  - SOMNOLENCE [None]
